FAERS Safety Report 24565900 (Version 2)
Quarter: 2024Q4

REPORT INFORMATION
  Report Type: Spontaneous
  Country: CA (occurrence: CA)
  Receive Date: 20241030
  Receipt Date: 20241111
  Transmission Date: 20250114
  Serious: Yes (Hospitalization)
  Sender: JOHNSON AND JOHNSON
  Company Number: CA-JNJFOC-20241072888

PATIENT
  Age: 76 Year
  Sex: Male

DRUGS (39)
  1. RISPERDAL [Suspect]
     Active Substance: RISPERIDONE
     Indication: Neuropsychological symptoms
     Route: 065
  2. RISPERDAL [Suspect]
     Active Substance: RISPERIDONE
     Indication: Dementia with Lewy bodies
     Route: 065
  3. RISPERDAL [Suspect]
     Active Substance: RISPERIDONE
     Route: 065
  4. CITALOPRAM [Suspect]
     Active Substance: CITALOPRAM
     Indication: Neuropsychological symptoms
     Route: 065
  5. CITALOPRAM [Suspect]
     Active Substance: CITALOPRAM
     Indication: Dementia with Lewy bodies
     Route: 065
  6. CITALOPRAM [Suspect]
     Active Substance: CITALOPRAM
     Route: 065
  7. LORAZEPAM [Suspect]
     Active Substance: LORAZEPAM
     Indication: Neuropsychological symptoms
     Route: 051
  8. LOXAPINE [Suspect]
     Active Substance: LOXAPINE
     Indication: Neuropsychological symptoms
     Route: 065
  9. LOXAPINE [Suspect]
     Active Substance: LOXAPINE
     Indication: Dementia with Lewy bodies
     Route: 065
  10. LOXAPINE SUCCINATE [Suspect]
     Active Substance: LOXAPINE SUCCINATE
     Indication: Neuropsychological symptoms
     Route: 051
  11. OLANZAPINE [Suspect]
     Active Substance: OLANZAPINE
     Indication: Neuropsychological symptoms
     Route: 065
  12. OLANZAPINE [Suspect]
     Active Substance: OLANZAPINE
     Indication: Dementia with Lewy bodies
     Route: 065
  13. OLANZAPINE [Suspect]
     Active Substance: OLANZAPINE
     Route: 065
  14. QUETIAPINE [Suspect]
     Active Substance: QUETIAPINE
     Indication: Neuropsychological symptoms
     Route: 065
  15. QUETIAPINE [Suspect]
     Active Substance: QUETIAPINE
     Indication: Dementia with Lewy bodies
     Route: 065
  16. QUETIAPINE [Suspect]
     Active Substance: QUETIAPINE
     Route: 065
  17. QUETIAPINE [Suspect]
     Active Substance: QUETIAPINE
     Route: 065
  18. QUETIAPINE [Suspect]
     Active Substance: QUETIAPINE
     Route: 065
  19. QUETIAPINE [Suspect]
     Active Substance: QUETIAPINE
     Route: 065
  20. QUETIAPINE [Suspect]
     Active Substance: QUETIAPINE
     Route: 065
  21. QUETIAPINE [Suspect]
     Active Substance: QUETIAPINE
     Route: 065
  22. QUETIAPINE [Suspect]
     Active Substance: QUETIAPINE
     Route: 065
  23. QUETIAPINE [Suspect]
     Active Substance: QUETIAPINE
     Route: 065
  24. QUETIAPINE [Suspect]
     Active Substance: QUETIAPINE
     Route: 065
  25. QUETIAPINE [Suspect]
     Active Substance: QUETIAPINE
     Route: 065
  26. RIVASTIGMINE [Suspect]
     Active Substance: RIVASTIGMINE
     Indication: Neuropsychological symptoms
     Route: 065
  27. RIVASTIGMINE [Suspect]
     Active Substance: RIVASTIGMINE
     Route: 065
  28. RIVASTIGMINE [Suspect]
     Active Substance: RIVASTIGMINE
     Indication: Neuropsychological symptoms
     Route: 065
  29. RIVASTIGMINE [Suspect]
     Active Substance: RIVASTIGMINE
     Indication: Dementia with Lewy bodies
     Route: 062
  30. RIVASTIGMINE [Suspect]
     Active Substance: RIVASTIGMINE
     Route: 065
  31. RIVASTIGMINE [Suspect]
     Active Substance: RIVASTIGMINE
     Route: 062
  32. RIVASTIGMINE [Suspect]
     Active Substance: RIVASTIGMINE
     Route: 065
  33. RIVASTIGMINE [Suspect]
     Active Substance: RIVASTIGMINE
     Route: 062
  34. RIVASTIGMINE [Suspect]
     Active Substance: RIVASTIGMINE
     Route: 065
  35. TRAZODONE [Suspect]
     Active Substance: TRAZODONE HYDROCHLORIDE
     Indication: Dementia with Lewy bodies
     Route: 065
  36. TRAZODONE [Suspect]
     Active Substance: TRAZODONE HYDROCHLORIDE
     Indication: Neuropsychological symptoms
     Route: 065
  37. TRAZODONE [Suspect]
     Active Substance: TRAZODONE HYDROCHLORIDE
     Route: 065
  38. CLONAZEPAM [Suspect]
     Active Substance: CLONAZEPAM
     Indication: Neuropsychological symptoms
     Route: 065
  39. CLONAZEPAM [Suspect]
     Active Substance: CLONAZEPAM
     Indication: Dementia with Lewy bodies
     Route: 065

REACTIONS (3)
  - Off label use [Unknown]
  - Drug ineffective for unapproved indication [Unknown]
  - Therapeutic product ineffective [Unknown]
